FAERS Safety Report 7425695-X (Version None)
Quarter: 2011Q2

REPORT INFORMATION
  Report Type: 
  Country: None (occurrence: None)
  Receive Date: 20110420
  Receipt Date: 20110407
  Transmission Date: 20111010
  Serious: Yes (Hospitalization, Other)
  Sender: FDA-Public Use
  Company Number: US-ELI_LILLY_AND_COMPANY-US201002002802

PATIENT
  Sex: Female

DRUGS (11)
  1. FORTEO [Suspect]
     Indication: OSTEOPOROSIS
     Dosage: 20 UG, DAILY (1/D)
     Route: 065
  2. HYDROCHLOROTHIAZIDE [Concomitant]
  3. AMITRIPTYLINE [Concomitant]
  4. CALCIUM [Concomitant]
  5. OMEPRAZOLE [Concomitant]
  6. PREDNISONE [Concomitant]
  7. VITAMINS NOS [Concomitant]
  8. VITAMIN D [Concomitant]
  9. POTASSIUM [Concomitant]
  10. CILOSTAZOL [Concomitant]
  11. FISH OIL [Concomitant]

REACTIONS (3)
  - HIP FRACTURE [None]
  - FALL [None]
  - CONSTIPATION [None]
